FAERS Safety Report 21614932 (Version 1)
Quarter: 2022Q4

REPORT INFORMATION
  Report Type: Spontaneous
  Country: GB (occurrence: GB)
  Receive Date: 20221118
  Receipt Date: 20221118
  Transmission Date: 20230113
  Serious: Yes (Hospitalization, Other)
  Sender: FDA-Public Use
  Company Number: GB-MHRA-MED-202211101946556490-YPVDQ

PATIENT
  Age: 32 Year
  Sex: Female
  Weight: 94 kg

DRUGS (1)
  1. BISOPROLOL [Suspect]
     Active Substance: BISOPROLOL
     Indication: Sinus tachycardia
     Dosage: 2.5 MG, QD (ONCE A DAY IN THE MORNING)
     Route: 065
     Dates: start: 20221031

REACTIONS (1)
  - Palpitations [Not Recovered/Not Resolved]

NARRATIVE: CASE EVENT DATE: 20221031
